FAERS Safety Report 9364496 (Version 2)
Quarter: 2013Q3

REPORT INFORMATION
  Report Type: Spontaneous
  Country: GB (occurrence: GB)
  Receive Date: 20130624
  Receipt Date: 20130705
  Transmission Date: 20140515
  Serious: Yes (Hospitalization)
  Sender: FDA-Public Use
  Company Number: PHHY2013GB062657

PATIENT
  Age: 55 Year
  Sex: Male

DRUGS (4)
  1. CLOPIDOGREL [Suspect]
     Indication: ANGINA UNSTABLE
     Dosage: 75 MG, QD
  2. ACETYLSALICYLIC ACID [Suspect]
     Indication: ANGINA UNSTABLE
     Dosage: 100 MG, QD
  3. PREDNISOLONE [Concomitant]
     Dosage: 30 MG, QD
  4. HEPARIN [Concomitant]
     Dosage: 50 IU/KG

REACTIONS (1)
  - Ecchymosis [Recovered/Resolved]
